FAERS Safety Report 9995897 (Version 1)
Quarter: 2014Q1

REPORT INFORMATION
  Report Type: Spontaneous
  Country: US (occurrence: US)
  Receive Date: 20140311
  Receipt Date: 20140311
  Transmission Date: 20141002
  Serious: Yes (Hospitalization)
  Sender: FDA-Public Use
  Company Number: US-B.I. PHARMACEUTICALS,INC./RIDGEFIELD-2014-BI-09691BP

PATIENT
  Age: 78 Year
  Sex: Male
  Weight: 81 kg

DRUGS (6)
  1. PRADAXA [Suspect]
     Indication: ATRIAL FIBRILLATION
     Dosage: 300 MG
     Route: 048
     Dates: start: 201309
  2. ADVAIR [Concomitant]
     Indication: EMPHYSEMA
     Dosage: FORMULATION: INHALER
     Route: 065
  3. AMLODIPINE [Concomitant]
     Indication: HYPERTENSION
     Dosage: 5 MG
     Route: 065
  4. LOVESTATIN [Concomitant]
     Indication: BLOOD CHOLESTEROL INCREASED
     Dosage: 40 MG
     Route: 065
  5. FINASTERIDE [Concomitant]
     Indication: BLADDER DISORDER
     Dosage: 5 MG
     Route: 065
  6. INHALER [Concomitant]
     Route: 065

REACTIONS (1)
  - Pneumonia [Recovered/Resolved]
